FAERS Safety Report 9376160 (Version 3)
Quarter: 2013Q4

REPORT INFORMATION
  Report Type: Spontaneous
  Country: IT (occurrence: IT)
  Receive Date: 20130701
  Receipt Date: 20131029
  Transmission Date: 20140711
  Serious: Yes (Other)
  Sender: FDA-Public Use
  Company Number: IT-ROCHE-1242791

PATIENT
  Age: 72 Year
  Sex: Female
  Weight: 55 kg

DRUGS (5)
  1. XELODA [Suspect]
     Indication: COLON CANCER
     Route: 048
     Dates: start: 20130509, end: 20130623
  2. OXALIPLATINO [Suspect]
     Indication: COLON CANCER
     Route: 042
     Dates: start: 20130509, end: 20130605
  3. ONDANSETRON HIKMA [Concomitant]
     Route: 042
     Dates: start: 20130509, end: 20130605
  4. SOLDESAM [Concomitant]
     Route: 042
     Dates: start: 20130509, end: 20130605
  5. RANIDIL [Concomitant]
     Route: 042
     Dates: start: 20130509, end: 20130605

REACTIONS (3)
  - Fatigue [Recovering/Resolving]
  - Muscle spasms [Recovering/Resolving]
  - Visual acuity reduced [Recovering/Resolving]
